FAERS Safety Report 4552038-1 (Version None)
Quarter: 2005Q1

REPORT INFORMATION
  Report Type: 
  Country: None (occurrence: None)
  Receive Date: 20050113
  Receipt Date: 20040428
  Transmission Date: 20050727
  Serious: Yes (Death, Hospitalization)
  Sender: FDA-Public Use
  Company Number: US-MERCK-0404USA02515

PATIENT
  Age: 60 Year
  Sex: Female
  Weight: 80 kg

DRUGS (10)
  1. ALBUTEROL [Concomitant]
     Route: 065
     Dates: start: 20010501
  2. PROZAC [Concomitant]
     Route: 065
     Dates: start: 20010701
  3. VITAMINS (UNSPECIFIED) [Concomitant]
     Route: 065
  4. ZOCOR [Concomitant]
     Route: 048
     Dates: start: 20020117
  5. VIOXX [Suspect]
     Indication: ARTHRITIS
     Route: 048
     Dates: start: 20010706, end: 20020405
  6. PREMARIN [Concomitant]
     Route: 065
     Dates: start: 20010801
  7. LIPITOR [Concomitant]
     Route: 065
     Dates: start: 20010901
  8. ATIVAN [Concomitant]
     Route: 065
     Dates: start: 20010701
  9. ALEVE [Concomitant]
     Route: 065
  10. ECOTRIN [Concomitant]
     Route: 065

REACTIONS (14)
  - ACUTE MYOCARDIAL INFARCTION [None]
  - ACUTE RESPIRATORY FAILURE [None]
  - ANXIETY [None]
  - AORTIC VALVE INCOMPETENCE [None]
  - ARTHRITIS [None]
  - CARDIAC ARREST [None]
  - COMA [None]
  - CONVULSION [None]
  - DEPRESSION [None]
  - DRUG INEFFECTIVE [None]
  - HYPOXIC ENCEPHALOPATHY [None]
  - MITRAL VALVE INCOMPETENCE [None]
  - TENOSYNOVITIS [None]
  - VENTRICULAR FIBRILLATION [None]
